APPROVED DRUG PRODUCT: DOCETAXEL
Active Ingredient: DOCETAXEL
Strength: 80MG/4ML (20MG/ML)
Dosage Form/Route: INJECTABLE;INJECTION
Application: N201195 | Product #004 | TE Code: AP
Applicant: ACCORD HEALTHCARE INC
Approved: Apr 20, 2012 | RLD: Yes | RS: No | Type: RX